FAERS Safety Report 5543990-6 (Version None)
Quarter: 2007Q4

REPORT INFORMATION
  Report Type: 
  Country: None (occurrence: None)
  Receive Date: 20071210
  Receipt Date: 20070517
  Transmission Date: 20080405
  Serious: No
  Sender: FDA-Public Use
  Company Number: US-AMGEN-KDL198623

PATIENT
  Sex: Male

DRUGS (2)
  1. ENBREL [Suspect]
     Indication: RHEUMATOID ARTHRITIS
     Route: 058
     Dates: start: 20060901
  2. ENBREL [Suspect]
     Indication: ANKYLOSING SPONDYLITIS

REACTIONS (7)
  - AMNESIA [None]
  - EXTERNAL EAR PAIN [None]
  - FEELING OF BODY TEMPERATURE CHANGE [None]
  - RASH [None]
  - SKIN NODULE [None]
  - SUBCUTANEOUS ABSCESS [None]
  - TIC [None]
